FAERS Safety Report 5160918-1 (Version None)
Quarter: 2006Q4

REPORT INFORMATION
  Report Type: 
  Country: None (occurrence: None)
  Receive Date: 20061130
  Receipt Date: 20061120
  Transmission Date: 20070319
  Serious: Yes (Hospitalization)
  Sender: FDA-Public Use
  Company Number: DE-ABBOTT-06P-062-0351031-00

PATIENT
  Age: 66 Year
  Sex: Female

DRUGS (2)
  1. HUMIRA [Suspect]
     Indication: RHEUMATOID ARTHRITIS
     Route: 058
     Dates: start: 20060301
  2. NONSTEROIDAL ANTI-INFLAMMATORY AGENT (NSAR) [Suspect]
     Indication: RHEUMATOID ARTHRITIS

REACTIONS (1)
  - CEREBROVASCULAR ACCIDENT [None]
